FAERS Safety Report 16431925 (Version 4)
Quarter: 2019Q3

REPORT INFORMATION
  Report Type: Spontaneous
  Country: NL (occurrence: NL)
  Receive Date: 20190614
  Receipt Date: 20190723
  Transmission Date: 20191004
  Serious: Yes (Hospitalization, Other)
  Sender: FDA-Public Use
  Company Number: NL-MYLANLABS-2019M1055053

PATIENT
  Age: 90 Year
  Sex: Male

DRUGS (2)
  1. CLOPIDOGREL [Suspect]
     Active Substance: CLOPIDOGREL BISULFATE
     Indication: PRODUCT USED FOR UNKNOWN INDICATION
     Dosage: UNK
     Route: 065
  2. APIXABAN [Suspect]
     Active Substance: APIXABAN
     Indication: MYOCARDIAL INFARCTION
     Dosage: 5 MILLIGRAM, UNK
     Route: 065

REACTIONS (5)
  - Product dispensing error [Unknown]
  - Contraindicated product administered [Unknown]
  - Wound haemorrhage [Not Recovered/Not Resolved]
  - Product use in unapproved indication [Unknown]
  - Failure to suspend medication [Unknown]
